FAERS Safety Report 9055372 (Version 3)
Quarter: 2013Q1

REPORT INFORMATION
  Report Type: Report from Study
  Country: BR (occurrence: BR)
  Receive Date: 20130125
  Receipt Date: 20130320
  Transmission Date: 20140127
  Serious: Yes (Hospitalization)
  Sender: FDA-Public Use
  Company Number: BR-ROCHE-741584

PATIENT
  Age: 51 None
  Sex: Female
  Weight: 82 kg

DRUGS (15)
  1. MABTHERA [Suspect]
     Indication: RHEUMATOID ARTHRITIS
     Dosage: FORM: INFUSION, 100 MG/10 ML, 1000 MG IN EACH INFUSION
     Route: 042
     Dates: start: 20100301, end: 20110404
  2. MABTHERA [Suspect]
     Dosage: FORM: INFUSION, 100 MG/10 ML, 1000 MG IN EACH INFUSION
     Route: 042
     Dates: start: 201104, end: 201105
  3. MABTHERA [Suspect]
     Route: 065
     Dates: start: 20110301, end: 201203
  4. VIAGRA [Concomitant]
     Indication: PULMONARY HYPERTENSION
     Dosage: FREQUENCY: TWO TABLETS
     Route: 065
  5. PREDNISONE [Concomitant]
     Route: 065
  6. PREDNISONE [Concomitant]
     Route: 065
  7. AZATHIOPRINE [Concomitant]
     Dosage: DRUG REPORTED AS AZATIOPRINE
     Route: 065
  8. METHOTREXATE [Concomitant]
     Indication: INFECTIVE MYOSITIS
     Dosage: DRUG REPORTED AS METHOTREXATO
     Route: 058
  9. AAS INFANTIL [Concomitant]
     Route: 065
  10. FOLIC ACID [Concomitant]
     Route: 065
  11. ALENDRONATE [Concomitant]
     Indication: OSTEOPOROSIS
     Dosage: DRUG REPORTED AS ALENDONATE.
     Route: 065
  12. PURAN T4 [Concomitant]
     Indication: THYROID DISORDER
     Dosage: 25 UG/TAB IN THE MORNING UNDER FASTING
     Route: 048
  13. ACID FOLIC [Concomitant]
     Route: 065
  14. ACETYLSALICYLIC ACID [Concomitant]
     Route: 065
  15. DICLOFENAC [Concomitant]
     Route: 065

REACTIONS (10)
  - Varicose vein [Recovered/Resolved]
  - Peripheral vascular disorder [Recovered/Resolved]
  - Infection [Recovered/Resolved]
  - Blood creatine phosphokinase increased [Recovered/Resolved]
  - Blood thyroid stimulating hormone abnormal [Recovered/Resolved]
  - Weight loss poor [Not Recovered/Not Resolved]
  - C-reactive protein increased [Not Recovered/Not Resolved]
  - Blood creatinine decreased [Recovered/Resolved]
  - Rheumatoid arthritis [Not Recovered/Not Resolved]
  - Blood cholesterol increased [Recovered/Resolved]
